FAERS Safety Report 19138057 (Version 1)
Quarter: 2021Q2

REPORT INFORMATION
  Report Type: Spontaneous
  Country: PL (occurrence: PL)
  Receive Date: 20210415
  Receipt Date: 20210415
  Transmission Date: 20210717
  Serious: Yes (Other)
  Sender: FDA-Public Use
  Company Number: PL-NEBO-PC006729

PATIENT
  Age: 82 Year
  Sex: Female
  Weight: 84 kg

DRUGS (1)
  1. MONOFER (IRON ISOMALTOSIDE 1000) [Suspect]
     Active Substance: IRON ISOMALTOSIDE 1000
     Indication: IRON DEFICIENCY ANAEMIA
     Route: 042
     Dates: start: 20200228, end: 20200228

REACTIONS (3)
  - Spinal pain [Recovered/Resolved]
  - Bradycardia [Recovered/Resolved]
  - Hypotension [Recovered/Resolved]

NARRATIVE: CASE EVENT DATE: 20200228
